FAERS Safety Report 23099764 (Version 1)
Quarter: 2023Q4

REPORT INFORMATION
  Report Type: Spontaneous
  Country: US (occurrence: US)
  Receive Date: 20231024
  Receipt Date: 20231024
  Transmission Date: 20240109
  Serious: Yes (Other)
  Sender: FDA-Public Use
  Company Number: US-MALLINCKRODT-MNK202305090

PATIENT
  Age: 57 Year
  Sex: Male

DRUGS (11)
  1. UVADEX [Suspect]
     Active Substance: METHOXSALEN
     Indication: Graft versus host disease in gastrointestinal tract
     Dosage: UNKNOWN
     Route: 050
     Dates: start: 2022
  2. UVADEX [Suspect]
     Active Substance: METHOXSALEN
     Indication: Graft versus host disease in skin
  3. UVADEX [Suspect]
     Active Substance: METHOXSALEN
     Indication: Graft versus host disease oral
  4. UVADEX [Suspect]
     Active Substance: METHOXSALEN
     Indication: Graft versus host disease in lung
  5. RUXOLITINIB [Suspect]
     Active Substance: RUXOLITINIB
     Indication: Immunosuppressant drug therapy
     Dosage: UNKNOWN
     Dates: start: 2022
  6. RUXOLITINIB [Suspect]
     Active Substance: RUXOLITINIB
     Dosage: UNK (TAPERING OFF)
     Dates: start: 2022
  7. BELUMOSUDIL [Suspect]
     Active Substance: BELUMOSUDIL
     Indication: Immunosuppressant drug therapy
     Dosage: UNKNOWN
     Dates: start: 2022
  8. BELUMOSUDIL [Suspect]
     Active Substance: BELUMOSUDIL
     Dosage: UNK (TAPERING OFF)
     Dates: start: 2022
  9. PREDNISONE [Concomitant]
     Active Substance: PREDNISONE
     Dosage: UNK
     Dates: start: 2021
  10. PREDNISONE [Concomitant]
     Active Substance: PREDNISONE
     Dosage: UNK (TAPER)
  11. LEVOFLOXACIN [Concomitant]
     Active Substance: LEVOFLOXACIN
     Dosage: UNK
     Dates: start: 2022

REACTIONS (4)
  - Alveolar proteinosis [Recovering/Resolving]
  - Atypical mycobacterium test positive [Unknown]
  - Blood lactate dehydrogenase increased [Unknown]
  - Drug effective for unapproved indication [Unknown]

NARRATIVE: CASE EVENT DATE: 20220101
